FAERS Safety Report 8092770-9 (Version None)
Quarter: 2012Q1

REPORT INFORMATION
  Report Type: 
  Country: None (occurrence: None)
  Receive Date: 20120128
  Receipt Date: 20110812
  Transmission Date: 20120608
  Serious: Yes (Hospitalization)
  Sender: FDA-Public Use
  Company Number: US-ABBOTT-11P-163-0846129-00

PATIENT
  Sex: Female
  Weight: 4.76 kg

DRUGS (3)
  1. HUMIRA [Suspect]
     Dosage: (80MG)
  2. VITAMIN D [Concomitant]
     Indication: PRODUCT USED FOR UNKNOWN INDICATION
  3. HUMIRA [Suspect]
     Indication: CROHN'S DISEASE
     Dosage: (160MG)
     Dates: start: 20110401

REACTIONS (2)
  - ABSCESS [None]
  - CROHN'S DISEASE [None]
